FAERS Safety Report 16647528 (Version 1)
Quarter: 2019Q3

REPORT INFORMATION
  Report Type: Spontaneous
  Country: US (occurrence: US)
  Receive Date: 20190730
  Receipt Date: 20190730
  Transmission Date: 20191004
  Serious: No
  Sender: FDA-Public Use
  Company Number: US-PFIZER INC-2019324151

PATIENT
  Sex: Female

DRUGS (2)
  1. NEURONTIN [Suspect]
     Active Substance: GABAPENTIN
     Dosage: UNK
  2. GABITRIL [Suspect]
     Active Substance: TIAGABINE HYDROCHLORIDE
     Dosage: UNK

REACTIONS (3)
  - Drug intolerance [Unknown]
  - Drug hypersensitivity [Unknown]
  - Ageusia [Unknown]
